FAERS Safety Report 6306003-4 (Version None)
Quarter: 2009Q3

REPORT INFORMATION
  Report Type: 
  Country: None (occurrence: None)
  Receive Date: 20090812
  Receipt Date: 20090806
  Transmission Date: 20100115
  Serious: Yes (Other)
  Sender: FDA-Public Use
  Company Number: ES-ASTRAZENECA-2009SE06326

PATIENT
  Age: 23 Year
  Sex: Female

DRUGS (1)
  1. ENTOCORD [Suspect]
     Indication: CROHN'S DISEASE
     Route: 048
     Dates: start: 20090714

REACTIONS (1)
  - PHOTOSENSITIVITY REACTION [None]
